FAERS Safety Report 13845478 (Version 1)
Quarter: 2017Q3

REPORT INFORMATION
  Report Type: Spontaneous
  Country: US (occurrence: US)
  Receive Date: 20170808
  Receipt Date: 20170808
  Transmission Date: 20171127
  Serious: Yes (Other)
  Sender: FDA-Public Use
  Company Number: US-ROCHE-789684

PATIENT
  Age: 58 Year
  Sex: Female
  Weight: 56.8 kg

DRUGS (5)
  1. VITAMIN D [Concomitant]
     Active Substance: CHOLECALCIFEROL
     Dosage: DOSE AND FREQUENCY NOT PROVIDED
     Route: 065
  2. VITAMIN C [Concomitant]
     Active Substance: ASCORBIC ACID
     Dosage: DOSE AND FREQUENCY NOT PROVIDED
     Route: 065
  3. ELMIRON [Concomitant]
     Active Substance: PENTOSAN POLYSULFATE SODIUM
     Dosage: DOSE AND FREQUENCY NOT PROVIDED
     Route: 065
  4. BONIVA [Suspect]
     Active Substance: IBANDRONATE SODIUM
     Indication: OSTEOPOROSIS
     Route: 048
  5. TOVIAZ [Concomitant]
     Active Substance: FESOTERODINE FUMARATE
     Dosage: DOSE AND FREQUENCY NOT PROVIDED
     Route: 065

REACTIONS (11)
  - Malaise [Unknown]
  - Influenza [Unknown]
  - Jaw disorder [Unknown]
  - Pain in jaw [Not Recovered/Not Resolved]
  - Pain [Unknown]
  - Pain in extremity [Unknown]
  - Musculoskeletal discomfort [Unknown]
  - Arthropathy [Not Recovered/Not Resolved]
  - Musculoskeletal stiffness [Unknown]
  - Ill-defined disorder [Unknown]
  - Malaise [Unknown]

NARRATIVE: CASE EVENT DATE: 201003
